FAERS Safety Report 11757242 (Version 1)
Quarter: 2015Q4

REPORT INFORMATION
  Report Type: Spontaneous
  Country: US (occurrence: US)
  Receive Date: 20151120
  Receipt Date: 20151120
  Transmission Date: 20160304
  Serious: Yes (Hospitalization)
  Sender: FDA-Public Use
  Company Number: US-AUROBINDO-AUR-APL-2015-10387

PATIENT
  Age: 26 Year
  Sex: Female

DRUGS (1)
  1. DIVALPROEX 500MG [Suspect]
     Active Substance: DIVALPROEX SODIUM
     Indication: PRODUCT USED FOR UNKNOWN INDICATION
     Dosage: 500 MG, TWO TIMES A DAY
     Route: 065

REACTIONS (2)
  - Onycholysis [Recovered/Resolved]
  - Nail pterygium [Recovered/Resolved]
